FAERS Safety Report 5018252-6 (Version None)
Quarter: 2006Q2

REPORT INFORMATION
  Report Type: 
  Country: None (occurrence: None)
  Receive Date: 20060525
  Receipt Date: 20060516
  Transmission Date: 20061013
  Serious: Yes (Death)
  Sender: FDA-Public Use
  Company Number: 2006-142769-NL

PATIENT
  Age: 75 Year
  Sex: Male

DRUGS (1)
  1. TICE BCG [Suspect]
     Indication: BLADDER CANCER
     Dosage: INTRAVESICAL
     Route: 043

REACTIONS (7)
  - ACUTE RESPIRATORY DISTRESS SYNDROME [None]
  - ACUTE RESPIRATORY FAILURE [None]
  - DISSEMINATED TUBERCULOSIS [None]
  - HEPATOMEGALY [None]
  - MULTI-ORGAN FAILURE [None]
  - RALES [None]
  - URINARY TRACT INFECTION [None]
